FAERS Safety Report 12563158 (Version 8)
Quarter: 2019Q3

REPORT INFORMATION
  Report Type: Spontaneous
  Country: US (occurrence: US)
  Receive Date: 20160715
  Receipt Date: 20190829
  Transmission Date: 20191004
  Serious: Yes (Hospitalization, Other)
  Sender: FDA-Public Use
  Company Number: US-PFIZER INC-2016305881

PATIENT
  Age: 65 Year
  Sex: Male
  Weight: 109 kg

DRUGS (86)
  1. ZEMPLAR [Concomitant]
     Active Substance: PARICALCITOL
     Indication: RENAL DISORDER
     Dosage: 1 UG, 4 X A WEEK
  2. NITROSTAT [Concomitant]
     Active Substance: NITROGLYCERIN
     Dosage: 10 MG, UNK
     Dates: start: 20140605
  3. VITAMIN B12 [Concomitant]
     Active Substance: CYANOCOBALAMIN
     Dosage: 2000 MG, DAILY
  4. PRALUENT [Concomitant]
     Active Substance: ALIROCUMAB
     Dosage: 150 MG, UNK (1 INJ EVERY 14 DAYS)
     Dates: start: 20151110
  5. PRALUENT [Concomitant]
     Active Substance: ALIROCUMAB
     Dosage: 150 MG, UNK (1 INJ EVERY 14 DAYS)
     Dates: start: 20151124
  6. PRALUENT [Concomitant]
     Active Substance: ALIROCUMAB
     Dosage: 150 MG, UNK (1 INJ EVERY 14 DAYS)
     Dates: start: 20151208
  7. PRALUENT [Concomitant]
     Active Substance: ALIROCUMAB
     Dosage: 150 MG, UNK (1 INJ EVERY 14 DAYS)
     Dates: start: 20160607
  8. PRALUENT [Concomitant]
     Active Substance: ALIROCUMAB
     Dosage: 150 MG, UNK (1 INJ EVERY 14 DAYS)
     Dates: start: 20160719
  9. PRALUENT [Concomitant]
     Active Substance: ALIROCUMAB
     Dosage: 150 MG, UNK (1 INJ EVERY 14 DAYS)
     Dates: start: 20161108
  10. CARDURA [Concomitant]
     Active Substance: DOXAZOSIN MESYLATE
     Dosage: 1 MG, 1X/DAY (IN PM)
     Dates: start: 20170111
  11. ZOLOFT [Concomitant]
     Active Substance: SERTRALINE HYDROCHLORIDE
     Indication: DEPRESSION
     Dosage: 50 MG, UNK
     Dates: start: 20161110
  12. ZOLOFT [Concomitant]
     Active Substance: SERTRALINE HYDROCHLORIDE
     Dosage: 50 MG, UNK
     Dates: start: 20161201
  13. ASPIRIN. [Concomitant]
     Active Substance: ASPIRIN
     Indication: CARDIAC DISORDER
     Dosage: 81 MG, 2X/DAY
     Route: 048
     Dates: start: 2009
  14. PENTOXIFYLLINE. [Concomitant]
     Active Substance: PENTOXIFYLLINE
     Dosage: 400 MG, 3X/DAY
     Route: 048
  15. AVAPRO [Concomitant]
     Active Substance: IRBESARTAN
     Indication: CARDIAC DISORDER
     Dosage: 150 MG, 1X/DAY
     Dates: start: 2009, end: 20161021
  16. AVAPRO [Concomitant]
     Active Substance: IRBESARTAN
     Dosage: 150 MG, 2X/DAY
  17. NITROSTAT [Concomitant]
     Active Substance: NITROGLYCERIN
     Dosage: UNK (5 TABLET)
  18. PRALUENT [Concomitant]
     Active Substance: ALIROCUMAB
     Dosage: 150 MG, UNK (1 INJ EVERY 14 DAYS)
     Dates: start: 20151027
  19. PRALUENT [Concomitant]
     Active Substance: ALIROCUMAB
     Dosage: 150 MG, UNK (1 INJ EVERY 14 DAYS)
     Dates: start: 20160301
  20. PRALUENT [Concomitant]
     Active Substance: ALIROCUMAB
     Dosage: 150 MG, UNK (1 INJ EVERY 14 DAYS)
     Dates: start: 20160315
  21. PRALUENT [Concomitant]
     Active Substance: ALIROCUMAB
     Dosage: 150 MG, UNK (1 INJ EVERY 14 DAYS)
     Dates: start: 20160412
  22. PRALUENT [Concomitant]
     Active Substance: ALIROCUMAB
     Dosage: 150 MG, UNK (1 INJ EVERY 14 DAYS)
     Dates: start: 20160426
  23. PRALUENT [Concomitant]
     Active Substance: ALIROCUMAB
     Dosage: 150 MG, UNK (1 INJ EVERY 14 DAYS)
     Dates: start: 20160705
  24. PENTOXIFYLLINE. [Concomitant]
     Active Substance: PENTOXIFYLLINE
     Indication: PAIN
     Dosage: 400 MG, 2X/DAY
     Route: 048
     Dates: start: 2000
  25. IMDUR [Concomitant]
     Active Substance: ISOSORBIDE MONONITRATE
     Dosage: 60 MG, 1X/DAY (IN THE MORNING)
     Route: 048
  26. AVAPRO [Concomitant]
     Active Substance: IRBESARTAN
     Indication: RENAL DISORDER
     Dosage: 300 MG, UNK
     Dates: start: 20161022
  27. AVAPRO [Concomitant]
     Active Substance: IRBESARTAN
     Dosage: 150 MG, 2X/DAY (AM + PM )
     Dates: start: 20161124
  28. NITROSTAT [Concomitant]
     Active Substance: NITROGLYCERIN
     Dosage: UNK
     Dates: start: 201510
  29. PRALUENT [Concomitant]
     Active Substance: ALIROCUMAB
     Indication: BLOOD CHOLESTEROL ABNORMAL
     Dosage: 150 MG, UNK (1 INJ EVERY 14 DAYS)
     Dates: start: 20150929
  30. PRALUENT [Concomitant]
     Active Substance: ALIROCUMAB
     Dosage: 150 MG, UNK (1 INJ EVERY 14 DAYS)
     Dates: start: 20160510
  31. PRALUENT [Concomitant]
     Active Substance: ALIROCUMAB
     Dosage: 150 MG, UNK (1 INJ EVERY 14 DAYS)
     Dates: start: 20160621
  32. PRALUENT [Concomitant]
     Active Substance: ALIROCUMAB
     Dosage: 150 MG, UNK (1 INJ EVERY 14 DAYS)
     Dates: start: 20160802
  33. PRALUENT [Concomitant]
     Active Substance: ALIROCUMAB
     Dosage: 150 MG, UNK (1 INJ EVERY 14 DAYS)
     Dates: start: 20160830
  34. PRALUENT [Concomitant]
     Active Substance: ALIROCUMAB
     Dosage: 150 MG, UNK (1 INJ EVERY 14 DAYS)
     Dates: start: 20160926
  35. PRALUENT [Concomitant]
     Active Substance: ALIROCUMAB
     Dosage: 150 MG, UNK (1 INJ EVERY 14 DAYS)
     Dates: start: 20170102
  36. PRALUENT [Concomitant]
     Active Substance: ALIROCUMAB
     Dosage: 150 MG, UNK (1 INJ EVERY 14 DAYS)
     Dates: start: 20170117
  37. FLU SHOT [Concomitant]
     Active Substance: INFLUENZA VIRUS VACCINE
     Dosage: UNK
     Dates: start: 20151021
  38. XANAX [Concomitant]
     Active Substance: ALPRAZOLAM
     Dosage: 0.5 MG, 3X/DAY (TAKES ONE TO TWO A DAY, MAYBE ONE AT NIGHT)
     Dates: start: 20160929
  39. TORSEMIDE. [Concomitant]
     Active Substance: TORSEMIDE
     Dosage: 20 MG, UNK
     Dates: start: 20161001
  40. TOPROL XL [Concomitant]
     Active Substance: METOPROLOL SUCCINATE
     Indication: CARDIAC DISORDER
     Dosage: 50 MG, 1X/DAY [50 MG IN AM IF BP IS ABOVE 150]
     Route: 048
     Dates: start: 200901
  41. NITROSTAT [Concomitant]
     Active Substance: NITROGLYCERIN
     Dosage: UNK, 2X/DAY (NIGHT)
     Dates: start: 20151107
  42. VITAMIN B12 [Concomitant]
     Active Substance: CYANOCOBALAMIN
     Indication: VITAMIN B COMPLEX DEFICIENCY
     Dosage: 1000 MG, 1X/DAY
     Dates: start: 20150910
  43. PRALUENT [Concomitant]
     Active Substance: ALIROCUMAB
     Dosage: 150 MG, UNK (1 INJ EVERY 14 DAYS)
     Dates: start: 20160105
  44. PRALUENT [Concomitant]
     Active Substance: ALIROCUMAB
     Dosage: 150 MG, UNK (1 INJ EVERY 14 DAYS)
     Dates: start: 20160329
  45. PRALUENT [Concomitant]
     Active Substance: ALIROCUMAB
     Dosage: 150 MG, UNK (1 INJ EVERY 14 DAYS)
     Dates: start: 20160524
  46. PRALUENT [Concomitant]
     Active Substance: ALIROCUMAB
     Dosage: 150 MG, UNK (1 INJ EVERY 14 DAYS)
     Dates: start: 20161011
  47. PRALUENT [Concomitant]
     Active Substance: ALIROCUMAB
     Dosage: 150 MG, UNK (1 INJ EVERY 14 DAYS)
     Dates: start: 20161025
  48. PRALUENT [Concomitant]
     Active Substance: ALIROCUMAB
     Dosage: 150 MG, UNK (1 INJ EVERY 14 DAYS)
     Dates: start: 20161205
  49. LYRICA [Suspect]
     Active Substance: PREGABALIN
     Indication: NEUROPATHY PERIPHERAL
     Dosage: 50 MG, 2X/DAY
     Route: 048
  50. HUMALOG [Concomitant]
     Active Substance: INSULIN LISPRO
     Dosage: 100 IU/ML, (59 UNITS CONTINUOUS IN PUMP)
  51. ZEMPLAR [Concomitant]
     Active Substance: PARICALCITOL
     Dosage: 1 UG, 1X/DAY
  52. PRALUENT [Concomitant]
     Active Substance: ALIROCUMAB
     Dosage: 150 MG, UNK (1 INJ EVERY 14 DAYS)
     Dates: start: 20151013
  53. PRALUENT [Concomitant]
     Active Substance: ALIROCUMAB
     Dosage: 150 MG, UNK (1 INJ EVERY 14 DAYS)
     Dates: start: 20151222
  54. PRALUENT [Concomitant]
     Active Substance: ALIROCUMAB
     Dosage: 150 MG, UNK (1 INJ EVERY 14 DAYS)
     Dates: start: 20161220
  55. FLU SHOT [Concomitant]
     Active Substance: INFLUENZA VIRUS VACCINE
     Dosage: UNK
     Dates: start: 20161012
  56. LANTUS [Concomitant]
     Active Substance: INSULIN GLARGINE
     Dosage: UNK
  57. LYRICA [Suspect]
     Active Substance: PREGABALIN
     Indication: HYPOAESTHESIA
  58. TOPROL XL [Concomitant]
     Active Substance: METOPROLOL SUCCINATE
     Dosage: 25 MG, 2X/DAY IF BELOW 140 [25 MG IN AM; 25 MG IN PM]
     Route: 048
  59. PLAVIX [Concomitant]
     Active Substance: CLOPIDOGREL BISULFATE
     Indication: CARDIAC DISORDER
     Dosage: 75 MG, 1X/DAY
     Route: 048
     Dates: start: 200901
  60. IMDUR [Concomitant]
     Active Substance: ISOSORBIDE MONONITRATE
     Indication: CARDIAC DISORDER
     Dosage: 60 MG, 1X/DAY
     Route: 048
     Dates: start: 200901
  61. NITROSTAT [Concomitant]
     Active Substance: NITROGLYCERIN
     Dosage: 5 MG, UNK
     Dates: start: 20161013
  62. PRALUENT [Concomitant]
     Active Substance: ALIROCUMAB
     Dosage: 150 MG, UNK (1 INJ EVERY 14 DAYS)
     Dates: start: 20160119
  63. PRALUENT [Concomitant]
     Active Substance: ALIROCUMAB
     Dosage: 150 MG, UNK (1 INJ EVERY 14 DAYS)
     Dates: start: 20160202
  64. PRALUENT [Concomitant]
     Active Substance: ALIROCUMAB
     Dosage: 150 MG, UNK (1 INJ EVERY 14 DAYS)
     Dates: start: 20160216
  65. PRALUENT [Concomitant]
     Active Substance: ALIROCUMAB
     Dosage: 150 MG, UNK (1 INJ EVERY 14 DAYS)
     Dates: start: 20161122
  66. TORSEMIDE. [Concomitant]
     Active Substance: TORSEMIDE
     Dosage: 20 MG, UNK
     Dates: start: 20160929
  67. TORSEMIDE. [Concomitant]
     Active Substance: TORSEMIDE
     Dosage: 20 MG, UNK
     Dates: start: 20161005
  68. VITAMIN D [Concomitant]
     Active Substance: VITAMIN D NOS
     Indication: VITAMIN D ABNORMAL
     Dosage: 7000 MG, DAILY
     Dates: start: 20150820
  69. NITROSTAT [Concomitant]
     Active Substance: NITROGLYCERIN
     Dosage: UNK, AS NEEDED (5MG UP TO 15 MG)
  70. NITROSTAT [Concomitant]
     Active Substance: NITROGLYCERIN
     Dosage: UNK (TOOK 5)
     Dates: start: 20160915
  71. NITROSTAT [Concomitant]
     Active Substance: NITROGLYCERIN
     Dosage: 5 MG, UNK
     Dates: start: 20160924
  72. PRALUENT [Concomitant]
     Active Substance: ALIROCUMAB
     Dosage: 150 MG, UNK (1 INJ EVERY 14 DAYS)
     Dates: start: 20160913
  73. PRALUENT [Concomitant]
     Active Substance: ALIROCUMAB
     Dosage: 75 MG/ML  (Q2 WEEKS AS DIRECTED)
  74. ZOLOFT [Concomitant]
     Active Substance: SERTRALINE HYDROCHLORIDE
     Dosage: 50 MG, 1X/DAY
  75. SODIUM BICARBONATE. [Concomitant]
     Active Substance: SODIUM BICARBONATE
     Dosage: 650 MG, 2X/DAY
     Dates: start: 20160614
  76. VITAMIN D3 [Concomitant]
     Active Substance: CHOLECALCIFEROL
     Dosage: 1000 IU, 1X/DAY (AS DIRECTED)
  77. ASA [Concomitant]
     Active Substance: ASPIRIN
     Dosage: 81 MG, 1X/DAY
  78. LYRICA [Suspect]
     Active Substance: PREGABALIN
     Indication: PARAESTHESIA
  79. HUMALOG [Concomitant]
     Active Substance: INSULIN LISPRO
     Indication: DIABETES MELLITUS
     Dosage: 100 IU/ML, (58 UNITS CONTINUOUS IN PUMP)
  80. AVAPRO [Concomitant]
     Active Substance: IRBESARTAN
     Indication: BLOOD PRESSURE ABNORMAL
     Dosage: 300 MG, UNK
     Dates: start: 20161023
  81. AVAPRO [Concomitant]
     Active Substance: IRBESARTAN
     Dosage: 300 MG, UNK
     Dates: start: 20161024
  82. VITAMIN B12 [Concomitant]
     Active Substance: CYANOCOBALAMIN
     Dosage: 1000 MG, DAILY
  83. PRALUENT [Concomitant]
     Active Substance: ALIROCUMAB
     Dosage: 150 MG, UNK (1 INJ EVERY 14 DAYS)
     Dates: start: 20160816
  84. ZOLOFT [Concomitant]
     Active Substance: SERTRALINE HYDROCHLORIDE
     Indication: STRESS
     Dosage: 25 MG, 1X/DAY
     Dates: start: 20161021, end: 20161109
  85. ZOLOFT [Concomitant]
     Active Substance: SERTRALINE HYDROCHLORIDE
     Dosage: 100 MG, UNK
     Dates: start: 20161121
  86. ZYLET [Concomitant]
     Active Substance: LOTEPREDNOL ETABONATE\TOBRAMYCIN
     Dosage: 2 GTT, EVERY 4 HRS (0.5%-0.3% SUSPENSION) (2 GTT)

REACTIONS (6)
  - Contusion [Unknown]
  - Blood glucose abnormal [Unknown]
  - Neuropathy peripheral [Unknown]
  - Drug ineffective [Unknown]
  - Injection site infection [Unknown]
  - Condition aggravated [Unknown]
